FAERS Safety Report 21977271 (Version 1)
Quarter: 2023Q1

REPORT INFORMATION
  Report Type: Spontaneous
  Country: US (occurrence: US)
  Receive Date: 20230210
  Receipt Date: 20230210
  Transmission Date: 20230417
  Serious: Yes (Other)
  Sender: FDA-Public Use
  Company Number: US-STRIDES ARCOLAB LIMITED-2023SP002011

PATIENT

DRUGS (4)
  1. RANITIDINE [Suspect]
     Active Substance: RANITIDINE
     Indication: Product used for unknown indication
     Dosage: UNK RANITIDINE (OVER THE COUNTER).
     Route: 065
     Dates: start: 2012, end: 2018
  2. RANITIDINE [Suspect]
     Active Substance: RANITIDINE
     Dosage: UNK ZANTAC (OVER THE COUNTER)
     Route: 065
     Dates: start: 2012, end: 2018
  3. RANITIDINE [Suspect]
     Active Substance: RANITIDINE
     Dosage: UNK RANITIDINE (PRESCRIPTION)
     Route: 065
     Dates: start: 2012, end: 2018
  4. RANITIDINE [Suspect]
     Active Substance: RANITIDINE
     Dosage: UNK ZANTAC (PRESCRIPTION)
     Route: 065
     Dates: start: 2012, end: 2018

REACTIONS (1)
  - Bladder cancer [Unknown]

NARRATIVE: CASE EVENT DATE: 20161001
